FAERS Safety Report 18151301 (Version 1)
Quarter: 2020Q3

REPORT INFORMATION
  Report Type: Spontaneous
  Country: US (occurrence: US)
  Receive Date: 20200814
  Receipt Date: 20200814
  Transmission Date: 20201103
  Serious: Yes (Hospitalization)
  Sender: FDA-Public Use
  Company Number: None

PATIENT
  Age: 76 Year
  Sex: Female

DRUGS (13)
  1. MAGNESIUM [Concomitant]
     Active Substance: MAGNESIUM
  2. TACROLIMUS. [Suspect]
     Active Substance: TACROLIMUS
     Indication: LIVER TRANSPLANT
     Route: 048
  3. POTASSIUM [Concomitant]
     Active Substance: POTASSIUM
  4. PROGRAF [Concomitant]
     Active Substance: TACROLIMUS
  5. ROBINUL [Concomitant]
     Active Substance: GLYCOPYRROLATE
  6. PROTONIX [Concomitant]
     Active Substance: PANTOPRAZOLE SODIUM
  7. LANTUS [Concomitant]
     Active Substance: INSULIN GLARGINE
  8. AMBIEN [Concomitant]
     Active Substance: ZOLPIDEM TARTRATE
  9. VITAMIN D [Concomitant]
     Active Substance: VITAMIN D NOS
  10. MUCINEX [Concomitant]
     Active Substance: GUAIFENESIN
  11. REGLAN [Concomitant]
     Active Substance: METOCLOPRAMIDE HYDROCHLORIDE
  12. VITAMIN C [Concomitant]
     Active Substance: ASCORBIC ACID
  13. OPANA [Concomitant]
     Active Substance: OXYMORPHONE HYDROCHLORIDE

REACTIONS (1)
  - Hospitalisation [None]

NARRATIVE: CASE EVENT DATE: 20200814
